FAERS Safety Report 5656467-4 (Version None)
Quarter: 2008Q1

REPORT INFORMATION
  Report Type: 
  Country: None (occurrence: None)
  Receive Date: 20080309
  Receipt Date: 20080121
  Transmission Date: 20080703
  Serious: No
  Sender: FDA-Public Use
  Company Number: US-BAYER-200810332BCC

PATIENT
  Age: 80 Year
  Sex: Female
  Weight: 57 kg

DRUGS (3)
  1. ALEVE [Suspect]
     Indication: RESTLESS LEGS SYNDROME
     Dosage: UNIT DOSE: 220 MG
     Route: 048
     Dates: start: 20070101, end: 20080121
  2. CALCIUM [Concomitant]
  3. GENERIC DAILY VITAMIN [Concomitant]

REACTIONS (1)
  - PETECHIAE [None]
